FAERS Safety Report 4821507-9 (Version None)
Quarter: 2005Q4

REPORT INFORMATION
  Report Type: 
  Country: None (occurrence: None)
  Receive Date: 20051107
  Receipt Date: 20051031
  Transmission Date: 20060501
  Serious: Yes (Other)
  Sender: FDA-Public Use
  Company Number: TR-GLAXOSMITHKLINE-B0399026A

PATIENT
  Age: 43 Year
  Sex: Female

DRUGS (1)
  1. LAMIVUDINE [Suspect]
     Dosage: 100MG PER DAY
     Route: 048

REACTIONS (7)
  - ACANTHOSIS [None]
  - DRY SKIN [None]
  - HYPERKERATOSIS [None]
  - ICHTHYOSIS ACQUIRED [None]
  - PSORIASIS [None]
  - SKIN EXFOLIATION [None]
  - XEROSIS [None]
